FAERS Safety Report 9859803 (Version 4)
Quarter: 2014Q2

REPORT INFORMATION
  Report Type: Spontaneous
  Country: NO (occurrence: NO)
  Receive Date: 20140131
  Receipt Date: 20140404
  Transmission Date: 20141212
  Serious: Yes (Other)
  Sender: FDA-Public Use
  Company Number: CHPA2014NO001981

PATIENT
  Sex: Female

DRUGS (1)
  1. NICOTINELL GUM [Suspect]
     Dosage: 2 MG, UNK

REACTIONS (3)
  - Mouth ulceration [Unknown]
  - Stomatitis [Not Recovered/Not Resolved]
  - Incorrect drug administration duration [Unknown]
